FAERS Safety Report 6416068-7 (Version None)
Quarter: 2009Q4

REPORT INFORMATION
  Report Type: 
  Country: None (occurrence: None)
  Receive Date: 20091027
  Receipt Date: 20091014
  Transmission Date: 20100525
  Serious: Yes (Hospitalization, Other)
  Sender: FDA-Public Use
  Company Number: US-ELI_LILLY_AND_COMPANY-US200910003387

PATIENT
  Sex: Female

DRUGS (4)
  1. SYMBYAX [Suspect]
     Indication: DEPRESSION
     Dosage: 1 D/F, DAILY (1/D)
     Dates: start: 20090401
  2. FLUOXETINE [Concomitant]
     Dosage: 20 MG, DAILY (1/D)
     Dates: start: 20090801
  3. BENTYL [Concomitant]
     Dosage: 10 MG, AS NEEDED
  4. LOMOTIL [Concomitant]
     Dosage: 2.5 MG, AS NEEDED

REACTIONS (8)
  - ABNORMAL BEHAVIOUR [None]
  - DEFORMITY [None]
  - DRUG INTERACTION [None]
  - FATIGUE [None]
  - HOSPITALISATION [None]
  - INSOMNIA [None]
  - LOSS OF CONSCIOUSNESS [None]
  - SOMNOLENCE [None]
